FAERS Safety Report 4658558-3 (Version None)
Quarter: 2005Q2

REPORT INFORMATION
  Report Type: 
  Country: None (occurrence: None)
  Receive Date: 20050511
  Receipt Date: 20050505
  Transmission Date: 20051028
  Serious: Yes (Hospitalization, Disabling)
  Sender: FDA-Public Use
  Company Number: MX-BOEHRINGER INGELHEIM PHARMACEUTICALS, INC.-2005-BP-07530MX

PATIENT
  Sex: Female

DRUGS (2)
  1. COMBIVENT [Suspect]
     Indication: ASTHMA
     Dosage: 20/120 MCG
     Route: 055
     Dates: start: 20050320
  2. DORALAN (LORATADINE) [Concomitant]
     Route: 048

REACTIONS (3)
  - FALL [None]
  - LACK OF SPONTANEOUS SPEECH [None]
  - PAIN [None]
